FAERS Safety Report 20870406 (Version 1)
Quarter: 2022Q2

REPORT INFORMATION
  Report Type: Report from Study
  Country: US (occurrence: US)
  Receive Date: 20220525
  Receipt Date: 20220525
  Transmission Date: 20220721
  Serious: No
  Sender: FDA-Public Use
  Company Number: US-NOVARTISTESTPH-NVSC2022US118697

PATIENT
  Sex: Female

DRUGS (1)
  1. MEKINIST [Suspect]
     Active Substance: TRAMETINIB DIMETHYL SULFOXIDE
     Indication: Malignant melanoma
     Dosage: 5 MG, QD (TAKE 3 TABLETS BY MOUTH DAILY AT LEAST 1 HOUR BEFORE OR 2 HOURS AFTER A MEAL)
     Route: 048

REACTIONS (2)
  - Myalgia [Recovered/Resolved]
  - Pyrexia [Recovered/Resolved]
